FAERS Safety Report 21897638 (Version 1)
Quarter: 2023Q1

REPORT INFORMATION
  Report Type: Spontaneous
  Country: IT (occurrence: IT)
  Receive Date: 20230123
  Receipt Date: 20230123
  Transmission Date: 20230418
  Serious: Yes (Other)
  Sender: FDA-Public Use
  Company Number: None

PATIENT
  Age: 71 Year
  Sex: Female

DRUGS (2)
  1. EPIRUBICIN HYDROCHLORIDE [Suspect]
     Active Substance: EPIRUBICIN HYDROCHLORIDE
     Indication: Breast cancer
     Dosage: 137.7 MG FREQ:21 D;
     Route: 042
     Dates: start: 20220526, end: 20220614
  2. CYCLOPHOSPHAMIDE [Suspect]
     Active Substance: CYCLOPHOSPHAMIDE
     Indication: Breast cancer
     Dosage: 918 MG FREQ:21 D;
     Route: 042
     Dates: start: 20220526, end: 20220614

REACTIONS (5)
  - Neuropathy peripheral [Not Recovered/Not Resolved]
  - Arrhythmia [Recovered/Resolved]
  - Venous thrombosis [Recovered/Resolved]
  - Nail pigmentation [Not Recovered/Not Resolved]
  - Nail dystrophy [Not Recovered/Not Resolved]

NARRATIVE: CASE EVENT DATE: 20220614
